FAERS Safety Report 16487516 (Version 1)
Quarter: 2019Q3

REPORT INFORMATION
  Report Type: Spontaneous
  Country: US (occurrence: US)
  Receive Date: 20190626
  Receipt Date: 20190626
  Transmission Date: 20191004
  Serious: Yes (Death, Hospitalization)
  Sender: FDA-Public Use
  Company Number: None

PATIENT
  Age: 78 Year
  Sex: Male

DRUGS (13)
  1. CIPROFLOXACN TAB 250 MG [Concomitant]
  2. TACROLIMUS CAP 0.5 MG [Concomitant]
     Active Substance: TACROLIMUS
  3. HYDROCO/APA TAB 5-300 MG [Concomitant]
  4. CLOPIDOGREL TAB 75 MG [Concomitant]
  5. MIRTAZAPINE TAB 15 MG [Concomitant]
  6. ZARXIO [Suspect]
     Active Substance: FILGRASTIM-SNDZ
     Indication: NEUTROPENIA
     Dosage: ?          OTHER FREQUENCY:WEEKLY;?
     Route: 058
     Dates: start: 20190212, end: 20190625
  7. LEVETIRACETA TAB 250 MG [Concomitant]
  8. TAMSOLUSIN CAP 0.4 MG [Concomitant]
  9. FLUOXETINE TAB 20 MG [Concomitant]
  10. DOXYCYL HYC CAP 100 MG [Concomitant]
  11. BUMETANIDE TAB 2 MG [Concomitant]
  12. ARANESP [Suspect]
     Active Substance: DARBEPOETIN ALFA
     Indication: PRODUCT USED FOR UNKNOWN INDICATION
     Route: 058
     Dates: end: 20190625
  13. RANITIDINE TAB 150 MG [Concomitant]

REACTIONS (1)
  - Death [None]

NARRATIVE: CASE EVENT DATE: 20190609
